FAERS Safety Report 4720450-3 (Version None)
Quarter: 2005Q3

REPORT INFORMATION
  Report Type: 
  Country: None (occurrence: None)
  Receive Date: 20050721
  Receipt Date: 20050718
  Transmission Date: 20060218
  Serious: Yes (Death)
  Sender: FDA-Public Use
  Company Number: DE-SANOFI-SYNTHELABO-F01200501282

PATIENT
  Sex: Male
  Weight: 97 kg

DRUGS (8)
  1. CLOPIDOGREL BISULFATE [Suspect]
     Indication: ACUTE CORONARY SYNDROME
     Dosage: UNK
     Route: 065
     Dates: start: 20050627
  2. ASS 100 [Concomitant]
     Dosage: 100 MG
     Route: 048
  3. ENOXAPARIN SODIUM [Concomitant]
     Dosage: 0.4 ML
  4. PANTOPRAZOLE [Concomitant]
     Dosage: 40 MG
  5. RAMIPRIL [Concomitant]
     Dosage: 2.5 MG
     Route: 048
  6. METOPROLOL SUCCINATE [Concomitant]
  7. AUGMENTIN '125' [Concomitant]
     Dosage: UNK
     Route: 065
     Dates: start: 20050628
  8. SORTIS [Concomitant]
     Dosage: 40 MG

REACTIONS (2)
  - CARDIOGENIC SHOCK [None]
  - THROMBOSIS [None]
